FAERS Safety Report 4779142-7 (Version None)
Quarter: 2005Q3

REPORT INFORMATION
  Report Type: 
  Country: None (occurrence: None)
  Receive Date: 20050926
  Receipt Date: 20050919
  Transmission Date: 20060218
  Serious: Yes (Other)
  Sender: FDA-Public Use
  Company Number: GB-MERCK-0509GBR00127

PATIENT
  Age: 60 Year
  Sex: Male
  Weight: 98 kg

DRUGS (4)
  1. ZETIA [Suspect]
     Indication: HYPERLIPIDAEMIA
     Route: 048
     Dates: start: 20050826, end: 20050904
  2. ATORVASTATIN CALCIUM [Concomitant]
     Indication: HYPERLIPIDAEMIA
     Route: 048
     Dates: start: 20040201
  3. BENDROFLUMETHIAZIDE [Concomitant]
     Indication: BLOOD PRESSURE INCREASED
     Route: 048
     Dates: start: 20030201
  4. DICLOFENAC SODIUM [Concomitant]
     Indication: BACK PAIN
     Route: 048
     Dates: start: 20050801, end: 20050904

REACTIONS (4)
  - ERYTHEMA MULTIFORME [None]
  - HYPERSENSITIVITY [None]
  - HYPOTENSION [None]
  - PERIORBITAL OEDEMA [None]
